FAERS Safety Report 6170103-2 (Version None)
Quarter: 2009Q2

REPORT INFORMATION
  Report Type: 
  Country: None (occurrence: None)
  Receive Date: 20090428
  Receipt Date: 20090420
  Transmission Date: 20091009
  Serious: Yes (Hospitalization)
  Sender: FDA-Public Use
  Company Number: B0569917A

PATIENT
  Age: 76 Year
  Sex: Male

DRUGS (3)
  1. WELLBUTRIN [Suspect]
     Indication: DEPRESSION
     Dosage: 300MG TWICE PER DAY
     Route: 065
     Dates: start: 20081001
  2. PAXIL [Concomitant]
     Indication: DEPRESSION
     Dosage: 25MG TWICE PER DAY
     Route: 065
     Dates: start: 20080301
  3. ALPRAZOLAM [Concomitant]
     Indication: DEPRESSION

REACTIONS (9)
  - ASTHENIA [None]
  - BALANCE DISORDER [None]
  - CONFUSIONAL STATE [None]
  - COORDINATION ABNORMAL [None]
  - DYSARTHRIA [None]
  - FALL [None]
  - GAIT DISTURBANCE [None]
  - OVERDOSE [None]
  - PARKINSONISM [None]
